FAERS Safety Report 18424149 (Version 1)
Quarter: 2020Q4

REPORT INFORMATION
  Report Type: Not Available
  Country: None (occurrence: None)
  Receive Date: 20201025
  Receipt Date: 20201025
  Transmission Date: 20210114
  Serious: No
  Sender: FDA-Public Use
  Company Number: US-AKORN-154764

PATIENT
  Sex: Female

DRUGS (1)
  1. AZELASTINE HCL OPTHALMIC SOLUTION [Suspect]
     Active Substance: AZELASTINE HYDROCHLORIDE

REACTIONS (5)
  - Dizziness [Unknown]
  - Dry eye [Unknown]
  - Depersonalisation/derealisation disorder [Unknown]
  - Swelling of eyelid [Unknown]
  - Nightmare [Unknown]
